FAERS Safety Report 12419023 (Version 2)
Quarter: 2019Q4

REPORT INFORMATION
  Report Type: Other
  Country: None (occurrence: US)
  Receive Date: 20160531
  Receipt Date: 20191017
  Transmission Date: 20200122
  Serious: No
  Sender: FDA-Public Use
  Company Number: US-LUNDBECK-DKLU2014471

PATIENT
  Age: 72 Year
  Sex: Male

DRUGS (4)
  1. NORTHERA [Suspect]
     Active Substance: DROXIDOPA
     Route: 065
  2. NORTHERA [Suspect]
     Active Substance: DROXIDOPA
     Indication: ORTHOSTATIC HYPOTENSION
     Route: 065
  3. NORTHERA [Suspect]
     Active Substance: DROXIDOPA
     Route: 065
  4. NORTHERA [Suspect]
     Active Substance: DROXIDOPA
     Route: 065

REACTIONS (6)
  - Anxiety [Recovered/Resolved]
  - Memory impairment [Recovered/Resolved]
  - Frustration tolerance decreased [Recovered/Resolved]
  - Irritability [Recovered/Resolved]
  - Hypertension [Recovered/Resolved]
  - Intermittent explosive disorder [Recovered/Resolved]
